FAERS Safety Report 9416987 (Version 1)
Quarter: 2013Q3

REPORT INFORMATION
  Report Type: Spontaneous
  Country: JP (occurrence: JP)
  Receive Date: 20130724
  Receipt Date: 20130724
  Transmission Date: 20140515
  Serious: Yes (Other)
  Sender: FDA-Public Use
  Company Number: PHHY2013JP076918

PATIENT
  Sex: Male

DRUGS (4)
  1. RIFAMPICIN SANDOZ [Suspect]
     Indication: PULMONARY TUBERCULOSIS
     Route: 048
  2. OXYCODONE HYDROCHLORIDE [Interacting]
     Indication: PAIN
     Dosage: 30 MG, UNK
  3. OXYCODONE HYDROCHLORIDE [Interacting]
     Dosage: 140 MG, UNK
  4. ACETAMINOPHEN [Concomitant]
     Indication: PAIN
     Dosage: 1200 MG, UNK
     Route: 048

REACTIONS (2)
  - Drug interaction [Recovered/Resolved]
  - Pain [Recovered/Resolved]
